FAERS Safety Report 5314871-8 (Version None)
Quarter: 2007Q2

REPORT INFORMATION
  Report Type: 
  Country: None (occurrence: None)
  Receive Date: 20070502
  Receipt Date: 20070417
  Transmission Date: 20071010
  Serious: Yes (Other)
  Sender: FDA-Public Use
  Company Number: CA-SHR-CA-2005-017505

PATIENT
  Age: 53 Year
  Sex: Female
  Weight: 104.31 kg

DRUGS (8)
  1. BETASERON [Suspect]
     Indication: RELAPSING-REMITTING MULTIPLE SCLEROSIS
     Dosage: 8 MIU, EVERY 2D
     Route: 058
     Dates: start: 20010126, end: 20050822
  2. BETASERON [Suspect]
     Dosage: 8 MIU, EVERY 2D
     Route: 058
     Dates: start: 20050825, end: 20061205
  3. BETASERON [Suspect]
     Dosage: 8 MIU, EVERY 2D
     Route: 058
     Dates: start: 20070315, end: 20070403
  4. METFORMIN HCL [Concomitant]
  5. RYTHMODAN [Concomitant]
     Indication: ARRHYTHMIA
  6. MONOCOR [Concomitant]
     Indication: ARRHYTHMIA
  7. ATASOL [Concomitant]
     Dosage: UNK, AS REQ'D
  8. ALERTEC [Suspect]
     Dosage: UNK, AS REQ'D
     Dates: end: 20050801

REACTIONS (5)
  - ALANINE AMINOTRANSFERASE INCREASED [None]
  - ASPARTATE AMINOTRANSFERASE INCREASED [None]
  - BLOOD LACTATE DEHYDROGENASE INCREASED [None]
  - HEPATIC ENZYME INCREASED [None]
  - HEPATOMEGALY [None]
